FAERS Safety Report 21341922 (Version 1)
Quarter: 2022Q3

REPORT INFORMATION
  Report Type: Spontaneous
  Country: CN (occurrence: CN)
  Receive Date: 20220916
  Receipt Date: 20220916
  Transmission Date: 20221027
  Serious: Yes (Hospitalization)
  Sender: FDA-Public Use
  Company Number: CN-PFIZER INC-PV202200061065

PATIENT
  Age: 74 Year
  Sex: Female
  Weight: 59 kg

DRUGS (1)
  1. LIPITOR [Suspect]
     Active Substance: ATORVASTATIN CALCIUM
     Indication: Cerebral infarction
     Dosage: 40 MG, 1X/DAY
     Route: 048
     Dates: start: 20220621, end: 20220630

REACTIONS (10)
  - Syncope [Recovered/Resolved]
  - Fall [Recovered/Resolved]
  - Head injury [Recovered/Resolved]
  - Myalgia [Recovered/Resolved]
  - Drug reaction with eosinophilia and systemic symptoms [Recovered/Resolved]
  - Hepatic function abnormal [Recovered/Resolved]
  - Pyrexia [Recovered/Resolved]
  - Asthenia [Recovered/Resolved]
  - Discomfort [Recovered/Resolved]
  - Nausea [Recovered/Resolved]

NARRATIVE: CASE EVENT DATE: 20220630
